FAERS Safety Report 4482951-5 (Version None)
Quarter: 2004Q4

REPORT INFORMATION
  Report Type: 
  Country: None (occurrence: None)
  Receive Date: 20040921
  Receipt Date: 20040504
  Transmission Date: 20050328
  Serious: Yes (Life-Threatening, Hospitalization, Disabling, Other)
  Sender: FDA-Public Use
  Company Number: 163-20785-04050180

PATIENT
  Age: 45 Year
  Sex: Male
  Weight: 66.2252 kg

DRUGS (17)
  1. THALOMID [Suspect]
     Indication: GLIOBLASTOMA MULTIFORME
     Dosage: 1200 MG, DAILY, ORAL
     Route: 048
     Dates: start: 20020701, end: 20040323
  2. TEMODAR [Suspect]
     Indication: GLIOBLASTOMA MULTIFORME
     Dosage: 360-80MG, QD X 6 WEEKS, ORAL
     Route: 048
     Dates: start: 20040802, end: 20040323
  3. NEURONTIN [Concomitant]
  4. FAMCYCLOVIR (FAMCICLOVIR) [Concomitant]
  5. CODEINE (CODEINE) [Concomitant]
  6. PHENOBARBITAL (PHAENOBARBITAL) [Concomitant]
  7. TAMIFLU [Concomitant]
  8. CEFTRIAXONE [Concomitant]
  9. FRAGMIN [Concomitant]
  10. SEPTRA DS [Concomitant]
  11. LEVAQUIN [Concomitant]
  12. HEPARIN [Concomitant]
  13. ASPIRIN [Concomitant]
  14. CPT-11 (IRINOTECAN) (INJECTION) [Concomitant]
  15. CARMUSTINE [Concomitant]
  16. TAXOL [Concomitant]
  17. TRILEPTAL [Concomitant]

REACTIONS (14)
  - APLASTIC ANAEMIA [None]
  - CONJUNCTIVAL HAEMORRHAGE [None]
  - COUGH [None]
  - EAR PAIN [None]
  - HEADACHE [None]
  - HERPETIC STOMATITIS [None]
  - MALAISE [None]
  - MYALGIA [None]
  - PAIN [None]
  - PETECHIAE [None]
  - PLATELET COUNT DECREASED [None]
  - PYREXIA [None]
  - SEPSIS [None]
  - UPPER RESPIRATORY TRACT INFECTION [None]
